FAERS Safety Report 9199850 (Version 2)
Quarter: 2013Q2

REPORT INFORMATION
  Report Type: Spontaneous
  Country: US (occurrence: US)
  Receive Date: 20130329
  Receipt Date: 20130515
  Transmission Date: 20140414
  Serious: Yes (Other)
  Sender: FDA-Public Use
  Company Number: US-ELI_LILLY_AND_COMPANY-US201303008221

PATIENT
  Age: 49 Year
  Sex: Female

DRUGS (3)
  1. EFFIENT [Suspect]
     Indication: STENT PLACEMENT
     Dosage: 60 MG, SINGLE
     Route: 048
     Dates: start: 20130408, end: 20130408
  2. EFFIENT [Suspect]
     Dosage: 10 MG, QD
     Route: 048
  3. ASPIRIN [Concomitant]

REACTIONS (1)
  - Thrombosis in device [Recovered/Resolved]
